FAERS Safety Report 4715248-6 (Version None)
Quarter: 2005Q3

REPORT INFORMATION
  Report Type: 
  Country: None (occurrence: None)
  Receive Date: 20050715
  Receipt Date: 20050701
  Transmission Date: 20060218
  Serious: Yes (Life-Threatening, Hospitalization)
  Sender: FDA-Public Use
  Company Number: FI-NOVOPROD-245359

PATIENT
  Age: 52 Year
  Sex: Male
  Weight: 80 kg

DRUGS (2)
  1. LEVEMIR [Suspect]
     Indication: DIABETES MELLITUS
     Dosage: UNK, UNK
     Dates: start: 20041118
  2. DISPERIN [Concomitant]
     Dosage: 100 MG, UNK
     Route: 048

REACTIONS (5)
  - ALCOHOL POISONING [None]
  - BRAIN DAMAGE [None]
  - ENCEPHALOPATHY [None]
  - HYPOGLYCAEMIA [None]
  - LOSS OF CONSCIOUSNESS [None]
